FAERS Safety Report 10532905 (Version 2)
Quarter: 2014Q4

REPORT INFORMATION
  Report Type: Report from Study
  Country: GB (occurrence: GB)
  Receive Date: 20141022
  Receipt Date: 20141103
  Transmission Date: 20150529
  Serious: Yes (Hospitalization)
  Sender: FDA-Public Use
  Company Number: GB-009507513-1410GBR008630

PATIENT
  Sex: Female

DRUGS (6)
  1. VORINOSTAT [Suspect]
     Active Substance: VORINOSTAT
     Indication: ACUTE MYELOID LEUKAEMIA
     Dosage: 300 MG, BID  (CURRENT CYCLE 3)
     Route: 048
     Dates: start: 20140813
  2. AZACITIDINE. [Suspect]
     Active Substance: AZACITIDINE
     Indication: ACUTE MYELOID LEUKAEMIA
     Dosage: 120 MG, QD ,  (CURRENT CYCLE 3)
     Route: 058
     Dates: start: 20140811
  3. METRONIDAZOLE. [Concomitant]
     Active Substance: METRONIDAZOLE
     Indication: TOOTH INFECTION
  4. AMOXICILLIN. [Concomitant]
     Active Substance: AMOXICILLIN
     Indication: TOOTH INFECTION
     Dosage: UNK
     Dates: start: 201410, end: 201410
  5. AMOXICILLIN. [Concomitant]
     Active Substance: AMOXICILLIN
     Indication: GINGIVITIS
  6. METRONIDAZOLE. [Concomitant]
     Active Substance: METRONIDAZOLE
     Indication: GINGIVITIS

REACTIONS (6)
  - Muscular weakness [Recovered/Resolved]
  - Oedema peripheral [Unknown]
  - Embolism [Unknown]
  - Constipation [Recovered/Resolved]
  - Haemorrhoids [Recovered/Resolved]
  - Pain [Unknown]

NARRATIVE: CASE EVENT DATE: 20140924
